FAERS Safety Report 12546142 (Version 5)
Quarter: 2019Q1

REPORT INFORMATION
  Report Type: Spontaneous
  Country: US (occurrence: US)
  Receive Date: 20160711
  Receipt Date: 20190108
  Transmission Date: 20190417
  Serious: Yes (Other)
  Sender: FDA-Public Use
  Company Number: US-DSJP-DSU-2016-115300

PATIENT

DRUGS (4)
  1. BENICAR [Suspect]
     Active Substance: OLMESARTAN MEDOXOMIL
     Indication: PRODUCT USED FOR UNKNOWN INDICATION
     Dosage: 40 MG, UNK
     Route: 065
  2. BENICAR HCT [Suspect]
     Active Substance: HYDROCHLOROTHIAZIDE\OLMESARTAN MEDOXOMIL
     Indication: HYPERTENSION
     Dosage: 40/25MG, QD
     Route: 048
     Dates: start: 201006, end: 201507
  3. BENICAR HCT [Suspect]
     Active Substance: HYDROCHLOROTHIAZIDE\OLMESARTAN MEDOXOMIL
     Dosage: 20-12.5 MG, QD
  4. BENICAR HCT [Suspect]
     Active Substance: HYDROCHLOROTHIAZIDE\OLMESARTAN MEDOXOMIL
     Dosage: 40-12.5 MG, QD

REACTIONS (10)
  - Sprue-like enteropathy [Recovered/Resolved]
  - Metaplasia [Unknown]
  - Haemorrhoids [Not Recovered/Not Resolved]
  - Acquired oesophageal web [Unknown]
  - Dizziness [Recovered/Resolved]
  - Diverticulum intestinal [Unknown]
  - Polyp [Recovered/Resolved]
  - Diverticulitis [Unknown]
  - Urate nephropathy [Unknown]
  - Constipation [Unknown]

NARRATIVE: CASE EVENT DATE: 20110615
